FAERS Safety Report 10977269 (Version 1)
Quarter: 2015Q1

REPORT INFORMATION
  Report Type: Spontaneous
  Country: US (occurrence: None)
  Receive Date: 20150331
  Receipt Date: 20150331
  Transmission Date: 20150721
  Serious: Yes (Other)
  Sender: FDA-Public Use
  Company Number: 150095

PATIENT
  Age: 46 Year
  Sex: Female
  Weight: 46.27 kg

DRUGS (12)
  1. SEROQUEL [Concomitant]
     Active Substance: QUETIAPINE FUMARATE
  2. OTC DIURETIC [Concomitant]
     Active Substance: UNSPECIFIED INGREDIENT
  3. ANTACIDS [Concomitant]
     Active Substance: UNSPECIFIED INGREDIENT
  4. PROPRANOLOL [Concomitant]
     Active Substance: PROPRANOLOL\PROPRANOLOL HYDROCHLORIDE
  5. BENADRYL [Concomitant]
     Active Substance: DIPHENHYDRAMINE HYDROCHLORIDE
  6. VISTARIL [Concomitant]
     Active Substance: HYDROXYZINE PAMOATE
  7. GOLYTELY [Suspect]
     Active Substance: POLYETHYLENE GLYCOL 3350\POTASSIUM CHLORIDE\SODIUM BICARBONATE\SODIUM CHLORIDE\SODIUM SULFATE ANHYDROUS
     Indication: COLONOSCOPY
     Dosage: ~3L 1X PO
     Route: 048
     Dates: start: 20150319, end: 20150320
  8. XANAX [Concomitant]
     Active Substance: ALPRAZOLAM
  9. REMERON [Concomitant]
     Active Substance: MIRTAZAPINE
  10. PROZAC [Concomitant]
     Active Substance: FLUOXETINE HYDROCHLORIDE
  11. GABAPENTIN. [Concomitant]
     Active Substance: GABAPENTIN
  12. TRAZODONE [Concomitant]
     Active Substance: TRAZODONE HYDROCHLORIDE

REACTIONS (16)
  - Dyspnoea [None]
  - Wheezing [None]
  - Face oedema [None]
  - Vomiting [None]
  - Hypocalcaemia [None]
  - Fluid retention [None]
  - Blood pressure decreased [None]
  - Hypokalaemia [None]
  - Dizziness [None]
  - Cough [None]
  - Weight increased [None]
  - Chest discomfort [None]
  - Diarrhoea [None]
  - Migraine [None]
  - Oedema peripheral [None]
  - Abdominal pain [None]

NARRATIVE: CASE EVENT DATE: 20150319
